FAERS Safety Report 8057346-8 (Version None)
Quarter: 2012Q1

REPORT INFORMATION
  Report Type: 
  Country: None (occurrence: None)
  Receive Date: 20120119
  Receipt Date: 20120111
  Transmission Date: 20120608
  Serious: Yes (Hospitalization, Other)
  Sender: FDA-Public Use
  Company Number: US-ABBOTT-11P-163-0873241-00

PATIENT
  Sex: Female

DRUGS (6)
  1. ADVAIR DISKUS 100/50 [Concomitant]
     Indication: ASTHMA
     Dates: start: 20110101
  2. FOSAMAX [Concomitant]
     Indication: OSTEOPENIA
     Dates: start: 20040101
  3. HUMIRA [Suspect]
     Indication: PSORIASIS
     Route: 058
     Dates: start: 20110519, end: 20110519
  4. HUMIRA [Suspect]
     Route: 058
  5. LIPITOR [Concomitant]
     Indication: HYPERCHOLESTEROLAEMIA
  6. ANALAPRIL [Concomitant]
     Indication: HYPERTENSION
     Dates: start: 20040101

REACTIONS (2)
  - LUNG ADENOCARCINOMA STAGE I [None]
  - ASTHMA [None]
